FAERS Safety Report 25423574 (Version 1)
Quarter: 2025Q2

REPORT INFORMATION
  Report Type: Spontaneous
  Country: US (occurrence: US)
  Receive Date: 20250611
  Receipt Date: 20250611
  Transmission Date: 20250716
  Serious: No
  Sender: LUPIN
  Company Number: US-LUPIN PHARMACEUTICALS INC.-2025-04633

PATIENT
  Age: 50 Year
  Weight: 97.506 kg

DRUGS (1)
  1. LISINOPRIL [Suspect]
     Active Substance: LISINOPRIL
     Indication: Hypertension
     Dosage: UNK, QD
     Route: 065

REACTIONS (5)
  - Brain fog [Unknown]
  - Feeling abnormal [Unknown]
  - Muscular weakness [Unknown]
  - Paraesthesia [Unknown]
  - Product quality issue [Unknown]
